FAERS Safety Report 6306492-5 (Version None)
Quarter: 2009Q3

REPORT INFORMATION
  Report Type: 
  Country: None (occurrence: None)
  Receive Date: 20090811
  Receipt Date: 20090811
  Transmission Date: 20100115
  Serious: Yes (Hospitalization)
  Sender: FDA-Public Use
  Company Number: None

PATIENT
  Age: 13 Year
  Sex: Female
  Weight: 93.2 kg

DRUGS (4)
  1. VANCOMYCIN [Suspect]
     Indication: MENINGITIS BACTERIAL
     Dosage: 1G Q6 IV
     Route: 042
     Dates: start: 20090714, end: 20090717
  2. ACYCLOVIR [Suspect]
     Indication: MENINGITIS VIRAL
     Dosage: 930MG Q8 IV
     Route: 042
     Dates: start: 20090714, end: 20090717
  3. ROCEPHIN [Concomitant]
  4. TORADOL [Concomitant]

REACTIONS (2)
  - MENINGITIS [None]
  - RENAL FAILURE ACUTE [None]
